FAERS Safety Report 5710616-8 (Version None)
Quarter: 2008Q2

REPORT INFORMATION
  Report Type: 
  Country: None (occurrence: None)
  Receive Date: 20080415
  Receipt Date: 20080331
  Transmission Date: 20081010
  Serious: Yes (Hospitalization)
  Sender: FDA-Public Use
  Company Number: ADE#08-043

PATIENT
  Sex: Female
  Weight: 68.0396 kg

DRUGS (7)
  1. PANTOPRAZOLE SODIUM [Suspect]
     Dosage: ONCE DAILY
     Dates: start: 20080312, end: 20080320
  2. PLAVIX [Concomitant]
  3. TOPROL-XL [Concomitant]
  4. PRAVASTATIN [Concomitant]
  5. ISOSORBIDE MONONITRATE [Concomitant]
  6. FOSAMAX [Concomitant]
  7. CALCIUM + VITAMIN D [Concomitant]

REACTIONS (2)
  - CHEST PAIN [None]
  - THERAPEUTIC RESPONSE UNEXPECTED WITH DRUG SUBSTITUTION [None]
